FAERS Safety Report 11431809 (Version 1)
Quarter: 2015Q3

REPORT INFORMATION
  Report Type: Spontaneous
  Country: GB (occurrence: GB)
  Receive Date: 20150828
  Receipt Date: 20150828
  Transmission Date: 20151125
  Serious: Yes (Life-Threatening)
  Sender: FDA-Public Use
  Company Number: GB-FRESENIUS KABI-FK201504138

PATIENT
  Age: 76 Year
  Sex: Female
  Weight: 66 kg

DRUGS (12)
  1. FUROSEMIDE. [Concomitant]
     Active Substance: FUROSEMIDE
  2. PARACETAMOL [Concomitant]
     Active Substance: ACETAMINOPHEN
  3. ATENOLOL. [Concomitant]
     Active Substance: ATENOLOL
  4. METOCLOPRAMIDE. [Concomitant]
     Active Substance: METOCLOPRAMIDE
  5. ROCURONIUM [Suspect]
     Active Substance: ROCURONIUM BROMIDE
     Indication: NEUROMUSCULAR BLOCKING THERAPY
     Route: 065
     Dates: start: 20150515
  6. FERROUS SULFATE [Concomitant]
     Active Substance: FERROUS SULFATE\FERROUS SULFATE, DRIED
  7. MACROGOL [Concomitant]
     Active Substance: POLYETHYLENE GLYCOLS
  8. MIRTAZAPINE. [Concomitant]
     Active Substance: MIRTAZAPINE
  9. DOXAZOSIN [Concomitant]
     Active Substance: DOXAZOSIN\DOXAZOSIN MESYLATE
  10. LORATADINE. [Concomitant]
     Active Substance: LORATADINE
  11. ATORVASTATIN [Concomitant]
     Active Substance: ATORVASTATIN
  12. CODEINE PHOSPHATE [Concomitant]
     Active Substance: CODEINE PHOSPHATE

REACTIONS (1)
  - Anaphylactic reaction [Recovered/Resolved]

NARRATIVE: CASE EVENT DATE: 20150515
